FAERS Safety Report 11749448 (Version 1)
Quarter: 2015Q4

REPORT INFORMATION
  Report Type: Spontaneous
  Country: US (occurrence: US)
  Receive Date: 20151118
  Receipt Date: 20151118
  Transmission Date: 20160304
  Serious: No
  Sender: FDA-Public Use
  Company Number: US-PFIZER INC-2015312265

PATIENT
  Age: 69 Year
  Sex: Male
  Weight: 86.17 kg

DRUGS (9)
  1. VOTRIENT [Concomitant]
     Active Substance: PAZOPANIB HYDROCHLORIDE
     Dosage: 1X/DAY(TAKE 4 TABS PO DAILY ON AN EMPTY STOMACH 1 HR PRIOR OR 2 HRS AFTER MEAL-DB)
     Route: 048
     Dates: start: 20131205
  2. NEURONTIN [Concomitant]
     Active Substance: GABAPENTIN
     Dosage: 600 MG, DAILY
     Route: 048
  3. NORCO [Concomitant]
     Active Substance: ACETAMINOPHEN\HYDROCODONE BITARTRATE
     Dosage: 5 MG, 5/325 MG-EVERY 4 HOURS
     Route: 048
  4. TENORMIN [Concomitant]
     Active Substance: ATENOLOL
     Dosage: 100 MG, 2X/DAY
  5. VOTRIENT [Concomitant]
     Active Substance: PAZOPANIB HYDROCHLORIDE
     Dosage: 3 DF, DAILY (3 TABS PER DAY- DT)
     Dates: start: 20140325
  6. INLYTA [Suspect]
     Active Substance: AXITINIB
     Indication: METASTATIC RENAL CELL CARCINOMA
     Dosage: 5 MG, 2X/DAY (ONE IN MORNING, ONE IN EVENING)
     Route: 048
     Dates: start: 201509
  7. EXFORGE [Concomitant]
     Active Substance: AMLODIPINE BESYLATE\VALSARTAN
     Dosage: 10 MG, DAILY
     Route: 048
  8. VOTRIENT [Concomitant]
     Active Substance: PAZOPANIB HYDROCHLORIDE
     Dosage: 2 DF, DAILY(2 TABS (400 MG) PER DAY- DT)
     Dates: start: 20150422
  9. GABAPENTIN. [Concomitant]
     Active Substance: GABAPENTIN
     Dosage: 600 MG, 3X/DAY
     Route: 048
     Dates: start: 20150917

REACTIONS (9)
  - Dysphonia [Not Recovered/Not Resolved]
  - Fatigue [Recovering/Resolving]
  - Ear discomfort [Not Recovered/Not Resolved]
  - Malaise [Unknown]
  - Pain in extremity [Not Recovered/Not Resolved]
  - Asthenia [Not Recovered/Not Resolved]
  - Dizziness [Not Recovered/Not Resolved]
  - Dyspnoea [Not Recovered/Not Resolved]
  - Constipation [Not Recovered/Not Resolved]

NARRATIVE: CASE EVENT DATE: 201509
